FAERS Safety Report 19739748 (Version 1)
Quarter: 2021Q3

REPORT INFORMATION
  Report Type: Spontaneous
  Country: DE (occurrence: DE)
  Receive Date: 20210824
  Receipt Date: 20210824
  Transmission Date: 20211014
  Serious: Yes (Death, Life-Threatening, Hospitalization, Other)
  Sender: FDA-Public Use
  Company Number: DE-B.BRAUN MEDICAL INC.-2115570

PATIENT
  Age: 6 Month

DRUGS (1)
  1. LIDOCAINE HYDROCHLORIDE AND DEXTROSE [Suspect]
     Active Substance: DEXTROSE\LIDOCAINE HYDROCHLORIDE
     Indication: FEBRILE CONVULSION

REACTIONS (3)
  - Off label use [None]
  - Overdose [None]
  - Cardiac arrest [None]
